FAERS Safety Report 18252526 (Version 1)
Quarter: 2020Q3

REPORT INFORMATION
  Report Type: Spontaneous
  Country: US (occurrence: US)
  Receive Date: 20200910
  Receipt Date: 20200910
  Transmission Date: 20201103
  Serious: No
  Sender: FDA-Public Use
  Company Number: US-GLENMARK PHARMACEUTICALS-2019GMK043600

PATIENT

DRUGS (1)
  1. LIDOCAINE OINTMENT USP 5% [Suspect]
     Active Substance: LIDOCAINE
     Indication: VULVOVAGINAL PAIN
     Dosage: UNK
     Route: 065
     Dates: start: 20191006

REACTIONS (5)
  - Product use in unapproved indication [Unknown]
  - Product use issue [Unknown]
  - Vulvovaginal burning sensation [Recovering/Resolving]
  - Vulvovaginal discomfort [Unknown]
  - Vulvovaginal erythema [Unknown]

NARRATIVE: CASE EVENT DATE: 20191006
